FAERS Safety Report 24009405 (Version 1)
Quarter: 2024Q2

REPORT INFORMATION
  Report Type: Spontaneous
  Country: RU (occurrence: RU)
  Receive Date: 20240625
  Receipt Date: 20240625
  Transmission Date: 20240716
  Serious: Yes (Other)
  Sender: FDA-Public Use
  Company Number: RU-ROCHE-10000000435

PATIENT
  Age: 74 Year
  Sex: Female

DRUGS (4)
  1. TECENTRIQ [Suspect]
     Active Substance: ATEZOLIZUMAB
     Indication: Hepatocellular carcinoma
     Route: 042
     Dates: start: 20220513
  2. AVASTIN [Suspect]
     Active Substance: BEVACIZUMAB
     Indication: Hepatocellular carcinoma
     Route: 042
     Dates: start: 20220513
  3. FOLIC ACID [Concomitant]
     Active Substance: FOLIC ACID
  4. ETHAMSYLATE [Concomitant]
     Active Substance: ETHAMSYLATE

REACTIONS (9)
  - Thrombocytopenia [Recovered/Resolved with Sequelae]
  - Chronic gastritis [Recovered/Resolved with Sequelae]
  - Leukopenia [Recovered/Resolved with Sequelae]
  - Hepatic cirrhosis [Recovered/Resolved with Sequelae]
  - Hypersplenism [Recovered/Resolved with Sequelae]
  - Anaemia [Recovered/Resolved with Sequelae]
  - Coagulopathy [Recovered/Resolved with Sequelae]
  - Haemorrhagic diathesis [Recovered/Resolved with Sequelae]
  - Epistaxis [Recovered/Resolved with Sequelae]

NARRATIVE: CASE EVENT DATE: 20220530
